FAERS Safety Report 7506520-5 (Version None)
Quarter: 2011Q2

REPORT INFORMATION
  Report Type: 
  Country: None (occurrence: None)
  Receive Date: 20110526
  Receipt Date: 20110519
  Transmission Date: 20111010
  Serious: Yes (Other)
  Sender: FDA-Public Use
  Company Number: DK-BAXTER-2011BH000958

PATIENT
  Age: 17 Year
  Sex: Female

DRUGS (40)
  1. CYCLOPHOSPHAMIDE [Suspect]
     Indication: HODGKIN'S DISEASE
     Dosage: 03JUL2006-04SEP2006: 750 MG I.V.25SEP2006-03OKT2006: 775 MG I.V.1 TIMES INFUSION
     Route: 042
     Dates: start: 20061003, end: 20061003
  2. CYCLOPHOSPHAMIDE [Suspect]
     Dosage: 03JUL2006-04SEP2006: 750 MG I.V.25SEP2006-03OKT2006: 775 MG I.V.1 TIMES INFUSION
     Route: 042
     Dates: start: 20060904, end: 20060904
  3. MESNA [Suspect]
     Dosage: 03JUL2006-04SEP2006: 200 MG I.V.28SEP2006-03OKT2006: 230 MG I.V.
     Route: 042
     Dates: start: 20060828, end: 20060828
  4. MESNA [Suspect]
     Dosage: 03JUL2006-04SEP2006: 200 MG I.V.28SEP2006-03OKT2006: 230 MG I.V.
     Route: 042
     Dates: start: 20060703, end: 20060703
  5. VINCRISTINE SULFATE [Suspect]
     Dosage: BOLUS INJEKTION.
     Route: 042
     Dates: start: 20060619, end: 20060619
  6. VINCRISTINE SULFATE [Suspect]
     Dosage: BOLUS INJEKTION.
     Route: 042
     Dates: start: 20060522, end: 20060522
  7. ETOPOSIDE [Suspect]
     Indication: HODGKIN'S DISEASE
     Route: 042
     Dates: start: 20060605, end: 20060609
  8. CYCLOPHOSPHAMIDE [Suspect]
     Dosage: 03JUL2006-04SEP2006: 750 MG I.V.25SEP2006-03OKT2006: 775 MG I.V.1 TIMES INFUSION
     Route: 042
     Dates: start: 20060828, end: 20060828
  9. CYCLOPHOSPHAMIDE [Suspect]
     Dosage: 03JUL2006-04SEP2006: 750 MG I.V.25SEP2006-03OKT2006: 775 MG I.V.1 TIMES INFUSION
     Route: 042
     Dates: start: 20060807, end: 20060807
  10. CYCLOPHOSPHAMIDE [Suspect]
     Dosage: 03JUL2006-04SEP2006: 750 MG I.V.25SEP2006-03OKT2006: 775 MG I.V.1 TIMES INFUSION
     Route: 042
     Dates: start: 20060703, end: 20060703
  11. MESNA [Suspect]
     Dosage: 03JUL2006-04SEP2006: 200 MG I.V.28SEP2006-03OKT2006: 230 MG I.V.
     Route: 042
     Dates: start: 20060731, end: 20060731
  12. VINCRISTINE SULFATE [Suspect]
     Dosage: BOLUS INJEKTION.
     Route: 042
     Dates: start: 20060925, end: 20060925
  13. VINCRISTINE SULFATE [Suspect]
     Dosage: BOLUS INJEKTION.
     Route: 042
     Dates: start: 20060710, end: 20060710
  14. DOXORUBICIN HCL [Suspect]
     Indication: HODGKIN'S DISEASE
     Route: 042
     Dates: start: 20060619, end: 20060619
  15. DOXORUBICIN HCL [Suspect]
     Route: 042
     Dates: start: 20060508, end: 20060508
  16. GLUCOSE ^SAD^ [Concomitant]
     Indication: FLUID REPLACEMENT
     Route: 051
  17. VINCRISTINE SULFATE [Suspect]
     Dosage: BOLUS INJEKTION.
     Route: 042
     Dates: start: 20060807, end: 20060807
  18. VINCRISTINE SULFATE [Suspect]
     Dosage: BOLUS INJEKTION.
     Route: 042
     Dates: start: 20060515, end: 20060515
  19. CYCLOPHOSPHAMIDE [Suspect]
     Dosage: 03JUL2006-04SEP2006: 750 MG I.V.25SEP2006-03OKT2006: 775 MG I.V.1 TIMES INFUSION
     Route: 042
     Dates: start: 20060925, end: 20060925
  20. CYCLOPHOSPHAMIDE [Suspect]
     Dosage: 03JUL2006-04SEP2006: 750 MG I.V.25SEP2006-03OKT2006: 775 MG I.V.1 TIMES INFUSION
     Route: 042
     Dates: start: 20060731, end: 20060731
  21. MESNA [Suspect]
     Dosage: 03JUL2006-04SEP2006: 200 MG I.V.28SEP2006-03OKT2006: 230 MG I.V.
     Route: 042
     Dates: start: 20060925, end: 20060925
  22. PREDNISONE [Suspect]
     Indication: HODGKIN'S DISEASE
     Dosage: 08MAJ2006-03JUL2006: 35+25+25 MG.03JUL2006-28AUG2006:  20 MG X 3.
     Route: 048
     Dates: start: 20060508, end: 20061010
  23. VINCRISTINE SULFATE [Suspect]
     Dosage: BOLUS INJEKTION.
     Route: 042
     Dates: start: 20060904, end: 20060904
  24. DOXORUBICIN HCL [Suspect]
     Route: 042
     Dates: start: 20060605, end: 20060605
  25. CYCLOPHOSPHAMIDE [Suspect]
     Dosage: 03JUL2006-04SEP2006: 750 MG I.V.25SEP2006-03OKT2006: 775 MG I.V.1 TIMES INFUSION
     Route: 042
     Dates: start: 20060710, end: 20060710
  26. MESNA [Suspect]
     Indication: HODGKIN'S DISEASE
     Dosage: 03JUL2006-04SEP2006: 200 MG I.V.28SEP2006-03OKT2006: 230 MG I.V.
     Route: 042
     Dates: start: 20061003, end: 20061003
  27. MESNA [Suspect]
     Dosage: 03JUL2006-04SEP2006: 200 MG I.V.28SEP2006-03OKT2006: 230 MG I.V.
     Route: 042
     Dates: start: 20060807, end: 20060807
  28. MESNA [Suspect]
     Dosage: 03JUL2006-04SEP2006: 200 MG I.V.28SEP2006-03OKT2006: 230 MG I.V.
     Route: 042
     Dates: start: 20060710, end: 20060710
  29. VINCRISTINE SULFATE [Suspect]
     Indication: HODGKIN'S DISEASE
     Dosage: BOLUS INJEKTION.
     Route: 042
     Dates: start: 20061003, end: 20061003
  30. VINCRISTINE SULFATE [Suspect]
     Dosage: BOLUS INJEKTION.
     Route: 042
     Dates: start: 20060911, end: 20060911
  31. VINCRISTINE SULFATE [Suspect]
     Dosage: BOLUS INJEKTION.
     Route: 042
     Dates: start: 20060605, end: 20060605
  32. DOXORUBICIN HCL [Suspect]
     Route: 042
     Dates: start: 20060522, end: 20060522
  33. ETOPOSIDE [Suspect]
     Route: 042
     Dates: start: 20060508, end: 20060512
  34. VINCRISTINE SULFATE [Suspect]
     Dosage: BOLUS INJEKTION.
     Route: 042
     Dates: start: 20060828, end: 20060828
  35. VINCRISTINE SULFATE [Suspect]
     Dosage: BOLUS INJEKTION.
     Route: 042
     Dates: start: 20060703, end: 20060703
  36. PROCARBAZINE HYDROCHLORIDE [Suspect]
     Indication: HODGKIN'S DISEASE
     Route: 048
     Dates: start: 20060703, end: 20061010
  37. VINCRISTINE SULFATE [Suspect]
     Dosage: BOLUS INJEKTION.
     Route: 042
     Dates: start: 20060731, end: 20060731
  38. VINCRISTINE SULFATE [Suspect]
     Dosage: BOLUS INJEKTION.
     Route: 042
     Dates: start: 20060612, end: 20060612
  39. MESNA [Suspect]
     Dosage: 03JUL2006-04SEP2006: 200 MG I.V.28SEP2006-03OKT2006: 230 MG I.V.
     Route: 042
     Dates: start: 20060904, end: 20060904
  40. VINCRISTINE SULFATE [Suspect]
     Dosage: BOLUS INJEKTION.
     Route: 042
     Dates: start: 20060508, end: 20060508

REACTIONS (6)
  - FATIGUE [None]
  - PAIN IN EXTREMITY [None]
  - ARTHRALGIA [None]
  - OSTEONECROSIS [None]
  - INTERVERTEBRAL DISC PROTRUSION [None]
  - BACK PAIN [None]
